FAERS Safety Report 5960407-8 (Version None)
Quarter: 2008Q4

REPORT INFORMATION
  Report Type: 
  Country: None (occurrence: None)
  Receive Date: 20081120
  Receipt Date: 20081107
  Transmission Date: 20090506
  Serious: Yes (Other)
  Sender: FDA-Public Use
  Company Number: GR-ELI_LILLY_AND_COMPANY-GR200809003163

PATIENT
  Age: 51 Year
  Sex: Female
  Weight: 100 kg

DRUGS (5)
  1. CYMBALTA [Suspect]
     Indication: DEPRESSION
     Dosage: 60 MG, 2/D
     Route: 048
     Dates: start: 20070101, end: 20080911
  2. CYMBALTA [Suspect]
     Dosage: 60 MG, DAILY (1/D)
     Route: 048
     Dates: start: 20080912, end: 20080101
  3. CYMBALTA [Suspect]
     Dosage: 30 MG, DAILY (1/D)
     Route: 048
     Dates: start: 20080901, end: 20081004
  4. ISCOVER [Concomitant]
     Indication: ISCHAEMIA
     Dosage: 75 MG, DAILY (1/D)
     Route: 048
     Dates: start: 20060101
  5. LORAZEPAM [Concomitant]
     Indication: HYPNOTHERAPY
     Dosage: 2.5 MG, DAILY (1/D)
     Route: 048
     Dates: start: 20070101

REACTIONS (1)
  - HEPATIC ENZYME INCREASED [None]
